FAERS Safety Report 4979552-9 (Version None)
Quarter: 2006Q2

REPORT INFORMATION
  Report Type: 
  Country: None (occurrence: None)
  Receive Date: 20060418
  Receipt Date: 20060408
  Transmission Date: 20061013
  Serious: Yes (Life-Threatening, Hospitalization)
  Sender: FDA-Public Use
  Company Number: 13880

PATIENT
  Age: 55 Year
  Sex: Male

DRUGS (18)
  1. VINBLASTINE SULFATE [Suspect]
     Indication: CASTLEMAN'S DISEASE
     Dosage: 10 MG ONCE IV
     Route: 042
  2. VINBLASTINE SULFATE [Suspect]
     Indication: CASTLEMAN'S DISEASE
     Dosage: 10 MG ONCE IV
     Route: 042
  3. VINBLASTINE SULFATE [Suspect]
     Indication: CASTLEMAN'S DISEASE
     Dosage: 10 MG ONCE IV
     Route: 042
  4. VINBLASTINE SULFATE [Suspect]
     Indication: CASTLEMAN'S DISEASE
     Dosage: 1 MG ONCE IV
     Route: 042
  5. VINBLASTINE SULFATE [Suspect]
     Indication: CASTLEMAN'S DISEASE
     Dosage: 5 MG ONCE IV
     Route: 042
  6. VINBLASTINE SULFATE [Suspect]
     Indication: CASTLEMAN'S DISEASE
     Dosage: 10 MG ONCE IV
     Route: 042
  7. VINBLASTINE SULFATE [Suspect]
     Indication: CASTLEMAN'S DISEASE
     Dosage: 10 MG ONCE IV
     Route: 042
  8. VINBLASTINE SULFATE [Suspect]
     Indication: CASTLEMAN'S DISEASE
     Dosage: 3 MG OTH IV
     Route: 042
  9. ABACAVIR [Suspect]
     Indication: HIV INFECTION
  10. ABACAVIR [Suspect]
     Indication: HIV INFECTION
  11. LAMIVUDINE [Suspect]
     Indication: HIV INFECTION
  12. LAMIVUDINE [Suspect]
     Indication: HIV INFECTION
  13. NEVIRAPINE [Suspect]
     Indication: HIV INFECTION
  14. NEVIRAPINE [Suspect]
     Indication: HIV INFECTION
  15. RITONAVIR-BOOSTED LOPINAVIR [Suspect]
     Indication: HIV INFECTION
  16. RITONAVIR-BOOSTED LOPINAVIR [Suspect]
     Indication: HIV INFECTION
  17. ZIDOVUDINE [Suspect]
     Indication: HIV INFECTION
  18. ZIDOVUDINE [Suspect]
     Indication: HIV INFECTION

REACTIONS (21)
  - BONE MARROW FAILURE [None]
  - C-REACTIVE PROTEIN INCREASED [None]
  - CASTLEMAN'S DISEASE [None]
  - CONSTIPATION [None]
  - DISEASE RECURRENCE [None]
  - DRUG INTERACTION [None]
  - ESCHERICHIA SEPSIS [None]
  - FATIGUE [None]
  - FEBRILE BONE MARROW APLASIA [None]
  - GENERAL PHYSICAL HEALTH DETERIORATION [None]
  - HERPES VIRUS INFECTION [None]
  - LYMPHADENOPATHY [None]
  - LYMPHADENOPATHY MEDIASTINAL [None]
  - NEUROPATHY PERIPHERAL [None]
  - NEUTROPENIA [None]
  - PANCYTOPENIA [None]
  - RENAL FAILURE [None]
  - SEPTIC SHOCK [None]
  - SERUM FERRITIN INCREASED [None]
  - SPLENOMEGALY [None]
  - TACHYCARDIA [None]
